FAERS Safety Report 14123203 (Version 1)
Quarter: 2017Q4

REPORT INFORMATION
  Report Type: Spontaneous
  Country: DE (occurrence: DE)
  Receive Date: 20171025
  Receipt Date: 20171025
  Transmission Date: 20180321
  Serious: Yes (Other)
  Sender: FDA-Public Use
  Company Number: DE-AUROBINDO-AUR-APL-2017-42239

PATIENT

DRUGS (3)
  1. CITALOPRAM [Suspect]
     Active Substance: CITALOPRAM HYDROBROMIDE
     Indication: DEPRESSION
     Dosage: 40 MG, DAILY
     Route: 064
     Dates: start: 20160411, end: 20170126
  2. MIRTAZAPINE. [Suspect]
     Active Substance: MIRTAZAPINE
     Indication: ANXIETY DISORDER
     Dosage: 30 MG, DAILY
     Route: 064
     Dates: start: 20160411, end: 20170126
  3. FOLSAEURE [Concomitant]
     Active Substance: FOLIC ACID
     Indication: PROPHYLAXIS OF NEURAL TUBE DEFECT
     Dosage: UNK
     Route: 064
     Dates: start: 20160411, end: 20170126

REACTIONS (1)
  - Pulmonary hypertension [Recovered/Resolved]

NARRATIVE: CASE EVENT DATE: 20170126
